FAERS Safety Report 5372471-8 (Version None)
Quarter: 2007Q2

REPORT INFORMATION
  Report Type: 
  Country: None (occurrence: None)
  Receive Date: 20070620
  Receipt Date: 20070423
  Transmission Date: 20071010
  Serious: No
  Sender: FDA-Public Use
  Company Number: 2007RL000184

PATIENT
  Age: 45 Year
  Sex: Male

DRUGS (2)
  1. OMACOR [Suspect]
     Indication: ANKYLOSING SPONDYLITIS
     Dosage: 4 GM;QD;PO
     Route: 048
     Dates: start: 20060101
  2. RELAFEN [Concomitant]

REACTIONS (4)
  - OFF LABEL USE [None]
  - SKIN ATROPHY [None]
  - SKIN IRRITATION [None]
  - THERAPEUTIC RESPONSE UNEXPECTED [None]
